FAERS Safety Report 4503489-2 (Version None)
Quarter: 2004Q4

REPORT INFORMATION
  Report Type: 
  Country: None (occurrence: None)
  Receive Date: 20041112
  Receipt Date: 20041104
  Transmission Date: 20050328
  Serious: Yes (Life-Threatening, Hospitalization)
  Sender: FDA-Public Use
  Company Number: 2004242988US

PATIENT
  Age: 85 Year
  Sex: Male
  Weight: 63.5 kg

DRUGS (10)
  1. CELEBREX [Suspect]
     Indication: PROSTATE CANCER
     Dosage: 400 MG, BID, ORAL
     Route: 048
     Dates: start: 20040908, end: 20041101
  2. COMPARATOR -DOCETAXEL (TOCETAXEL) INJECTION [Suspect]
     Dosage: 57 MG, CYCLIC, IV
     Route: 042
     Dates: start: 20040908
  3. SENNA (SENNA0 [Concomitant]
  4. MULTI-VITAMIN [Concomitant]
  5. LISINOPRIL [Concomitant]
  6. SIMVASTTIN (SIMVASTATIN) [Concomitant]
  7. FENTANYL [Concomitant]
  8. LACTULOSE [Concomitant]
  9. MEGACE [Concomitant]
  10. HYDROCHLOROTHIAZIDE [Concomitant]

REACTIONS (9)
  - ABDOMINAL PAIN [None]
  - DEHYDRATION [None]
  - DIARRHOEA [None]
  - HYPOTENSION [None]
  - NAUSEA [None]
  - RENAL FAILURE ACUTE [None]
  - SEPSIS [None]
  - URINARY TRACT INFECTION [None]
  - VOMITING [None]
